FAERS Safety Report 9473116 (Version 1)
Quarter: 2013Q3

REPORT INFORMATION
  Report Type: Spontaneous
  Country: US (occurrence: US)
  Receive Date: 20130823
  Receipt Date: 20130823
  Transmission Date: 20140515
  Serious: No
  Sender: FDA-Public Use
  Company Number: US-BRISTOL-MYERS SQUIBB COMPANY-17457078

PATIENT
  Age: 57 Year
  Sex: Female
  Weight: 59.41 kg

DRUGS (16)
  1. SPRYCEL [Suspect]
     Indication: CHRONIC MYELOID LEUKAEMIA
     Dosage: DOSE DECREASED FROM 100MG TO 70MG; NOW 50MG.
     Route: 048
     Dates: start: 201208
  2. KLONOPIN [Concomitant]
  3. PANCREATIN [Concomitant]
  4. PAXIL [Concomitant]
  5. CALCIUM [Concomitant]
  6. VITAMIN C [Concomitant]
  7. CARVEDILOL [Concomitant]
  8. ADRENALINE [Concomitant]
  9. LOVAZA [Concomitant]
  10. POTASSIUM [Concomitant]
  11. ACETYLSALICYLIC ACID [Concomitant]
     Dosage: ASA LOW DOSE
  12. RESTORIL [Concomitant]
  13. MAGNESIUM [Concomitant]
  14. COPPER [Concomitant]
  15. PROBIOTICA [Concomitant]
  16. MAGNESIUM OXIDE [Concomitant]

REACTIONS (7)
  - Decreased appetite [Not Recovered/Not Resolved]
  - Nausea [Not Recovered/Not Resolved]
  - Weight decreased [Not Recovered/Not Resolved]
  - Insomnia [Not Recovered/Not Resolved]
  - Rash pruritic [Not Recovered/Not Resolved]
  - Anaemia [Not Recovered/Not Resolved]
  - Fatigue [Not Recovered/Not Resolved]
